FAERS Safety Report 26006660 (Version 1)
Quarter: 2025Q4

REPORT INFORMATION
  Report Type: Spontaneous
  Country: EU (occurrence: EU)
  Receive Date: 20251106
  Receipt Date: 20251106
  Transmission Date: 20260117
  Serious: Yes (Other)
  Sender: RANBAXY
  Company Number: EU-MINISAL02-1049692

PATIENT
  Age: 57 Year
  Sex: Male

DRUGS (1)
  1. IMATINIB [Suspect]
     Active Substance: IMATINIB
     Indication: Chronic myeloid leukaemia
     Dosage: 400 MILLIGRAM, DAILY
     Route: 048
     Dates: start: 20250529, end: 20250714

REACTIONS (1)
  - Pancreatic toxicity [Recovered/Resolved]

NARRATIVE: CASE EVENT DATE: 20250714
